FAERS Safety Report 4680986-0 (Version None)
Quarter: 2005Q2

REPORT INFORMATION
  Report Type: 
  Country: None (occurrence: None)
  Receive Date: 20050601
  Receipt Date: 20050523
  Transmission Date: 20051028
  Serious: Yes (Other)
  Sender: FDA-Public Use
  Company Number: 2005078941

PATIENT
  Sex: Male

DRUGS (7)
  1. TIKOSYN [Suspect]
     Indication: ATRIAL FIBRILLATION
     Dosage: 250 MCG (125 MCG, 1 N 12 HR), ORAL
     Route: 048
     Dates: start: 20040601
  2. DIGOXIN [Suspect]
     Indication: ILL-DEFINED DISORDER
  3. TOPROL (METOPROLOL) [Concomitant]
  4. ZESTRIL [Concomitant]
  5. POTASSIUM ACETATE [Concomitant]
  6. LASIX [Concomitant]
  7. ALPRAZOLAM [Concomitant]

REACTIONS (6)
  - ANXIETY [None]
  - ATRIAL FIBRILLATION [None]
  - CARDIOACTIVE DRUG LEVEL DECREASED [None]
  - DRUG INEFFECTIVE [None]
  - MALAISE [None]
  - PHARMACEUTICAL PRODUCT COMPLAINT [None]
